FAERS Safety Report 7281996-X (Version None)
Quarter: 2011Q1

REPORT INFORMATION
  Report Type: 
  Country: None (occurrence: None)
  Receive Date: 20110208
  Receipt Date: 20110203
  Transmission Date: 20110831
  Serious: Yes (Hospitalization, Other)
  Sender: FDA-Public Use
  Company Number: AU-PFIZER INC-2011025313

PATIENT
  Sex: Male

DRUGS (2)
  1. EFFEXOR XR [Suspect]
     Dosage: 150 MG, UNK
     Route: 063
  2. EFFEXOR XR [Suspect]
     Dosage: 150 MG, UNK
     Route: 064

REACTIONS (5)
  - PREMATURE BABY [None]
  - ECZEMA [None]
  - FEEDING DISORDER NEONATAL [None]
  - DRUG EXPOSURE VIA BREAST MILK [None]
  - DRUG EXPOSURE DURING PREGNANCY [None]
